FAERS Safety Report 26084062 (Version 1)
Quarter: 2025Q4

REPORT INFORMATION
  Report Type: Spontaneous
  Country: CO (occurrence: CO)
  Receive Date: 20251124
  Receipt Date: 20251124
  Transmission Date: 20260118
  Serious: Yes (Other)
  Sender: BIOMARIN
  Company Number: CO-BIOMARINAP-CO-2025-170225

PATIENT
  Age: 21 Year
  Sex: Male
  Weight: 32.6 kg

DRUGS (1)
  1. NAGLAZYME [Suspect]
     Active Substance: GALSULFASE
     Indication: Mucopolysaccharidosis VI
     Dosage: UNK, QW
     Dates: start: 20061121

REACTIONS (1)
  - Hernia repair [Recovering/Resolving]

NARRATIVE: CASE EVENT DATE: 20251103
